FAERS Safety Report 18596631 (Version 4)
Quarter: 2021Q3

REPORT INFORMATION
  Report Type: Report from Study
  Country: CO (occurrence: CO)
  Receive Date: 20201209
  Receipt Date: 20210929
  Transmission Date: 20211014
  Serious: Yes (Other)
  Sender: FDA-Public Use
  Company Number: CO-TAKEDA-CO202028335

PATIENT
  Age: 34 Year
  Sex: Male
  Weight: 92 kg

DRUGS (6)
  1. ICATIBANT [Suspect]
     Active Substance: ICATIBANT ACETATE
     Indication: HEREDITARY ANGIOEDEMA
     Dosage: 30MG/3ML
     Route: 058
     Dates: start: 20160922
  2. ICATIBANT [Suspect]
     Active Substance: ICATIBANT ACETATE
     Indication: HEREDITARY ANGIOEDEMA
     Dosage: 30MG/3ML
     Route: 058
     Dates: start: 20160922
  3. ICATIBANT [Suspect]
     Active Substance: ICATIBANT ACETATE
     Dosage: 30MG/3ML, EVERY 4 HOURS
     Route: 058
     Dates: start: 20160922
  4. ICATIBANT [Suspect]
     Active Substance: ICATIBANT ACETATE
     Dosage: 30MG/3ML
     Route: 058
     Dates: start: 20160922
  5. ICATIBANT [Suspect]
     Active Substance: ICATIBANT ACETATE
     Dosage: 30MG/3ML
     Route: 058
     Dates: start: 20160922
  6. ICATIBANT [Suspect]
     Active Substance: ICATIBANT ACETATE
     Dosage: 30MG/3ML, EVERY 4 HOURS
     Route: 058
     Dates: start: 20160922

REACTIONS (4)
  - Product prescribing error [Unknown]
  - Weight decreased [Unknown]
  - Weight increased [Unknown]
  - Liver injury [Unknown]

NARRATIVE: CASE EVENT DATE: 20200822
